FAERS Safety Report 6431696-0 (Version None)
Quarter: 2009Q4

REPORT INFORMATION
  Report Type: 
  Country: None (occurrence: None)
  Receive Date: 20091103
  Receipt Date: 20091019
  Transmission Date: 20100525
  Serious: Yes (Hospitalization)
  Sender: FDA-Public Use
  Company Number: 02100-JPN-05-0342

PATIENT
  Age: 76 Year
  Sex: Female
  Weight: 44.5 kg

DRUGS (7)
  1. PLETAL [Suspect]
     Indication: CEREBRAL INFARCTION
     Dosage: 100 MG, BID ORAL
     Route: 048
     Dates: start: 20041014, end: 20050718
  2. MOBIC [Concomitant]
  3. OMNICAIN (PROCAINE HYDROCHLORIDE) [Concomitant]
  4. ARZ (HYALURONATE SODIUM) [Concomitant]
  5. INFLUENZA HA VACCINE (INFLUENZA HA VACCINE) [Concomitant]
  6. SELTOUCH (FELBINAC) TAPE (INCLUDING POULTICE) [Concomitant]
  7. CHINESE HERBAL MEDICINE (CHINESE HERBAL MEDICINE) [Concomitant]

REACTIONS (4)
  - POLLAKIURIA [None]
  - STRESS CARDIOMYOPATHY [None]
  - THALAMUS HAEMORRHAGE [None]
  - WHITE BLOOD CELL COUNT DECREASED [None]
